FAERS Safety Report 6541817-7 (Version None)
Quarter: 2010Q1

REPORT INFORMATION
  Report Type: 
  Country: None (occurrence: None)
  Receive Date: 20100119
  Receipt Date: 20100108
  Transmission Date: 20100710
  Serious: Yes (Hospitalization, Disabling)
  Sender: FDA-Public Use
  Company Number: PHHY2010JP01333

PATIENT
  Sex: Male
  Weight: 63 kg

DRUGS (14)
  1. ICL670A ICL+DISTAB [Suspect]
     Indication: IRON OVERLOAD
     Dosage: 1250 MG DAILY
     Route: 048
     Dates: start: 20080802, end: 20090728
  2. ICL670A ICL+DISTAB [Suspect]
     Indication: MYELODYSPLASTIC SYNDROME
  3. RED BLOOD CELLS, LEUCOCYTE DEPLETED [Concomitant]
     Dosage: 2 UNITS ONCE A WEEK
     Dates: start: 20060814
  4. SLOW-K [Concomitant]
     Dosage: 1800 MG, UNK
     Route: 048
     Dates: start: 20080813
  5. PRIMOBOLAN [Concomitant]
     Indication: MYELODYSPLASTIC SYNDROME
     Dosage: 15 MG, UNK
     Route: 048
     Dates: start: 20060815
  6. CEPHARANTHIN [Concomitant]
     Indication: MYELODYSPLASTIC SYNDROME
     Dosage: 60 MG, UNK
     Route: 048
     Dates: start: 20060815
  7. JUZENTAIHOTO [Concomitant]
     Indication: MYELODYSPLASTIC SYNDROME
     Dosage: 7.5 G, UNK
     Route: 048
     Dates: start: 20060815
  8. GLYCYRON [Concomitant]
     Dosage: 3 DF, UNK
     Route: 048
     Dates: start: 20080707
  9. KALLIKREIN [Concomitant]
     Dosage: 3 DF, UNK
     Route: 048
     Dates: start: 20060815
  10. URSO 250 [Concomitant]
     Dosage: 3 DF, UNK
     Route: 048
     Dates: start: 20080801
  11. OZEX [Concomitant]
     Dosage: 600 MG, UNK
     Route: 048
     Dates: start: 20080726
  12. ITRIZOLE [Concomitant]
     Dosage: 200 MG, UNK
     Route: 048
     Dates: start: 20080804
  13. BIOFERMIN R [Concomitant]
     Dosage: 3 DF, UNK
     Route: 048
     Dates: start: 20080704
  14. BAKTAR [Concomitant]
     Dosage: 2 DF, UNK
     Route: 048
     Dates: start: 20080712

REACTIONS (6)
  - BLOOD CREATININE INCREASED [None]
  - HEPATIC FUNCTION ABNORMAL [None]
  - PLEURAL EFFUSION [None]
  - PLEURISY [None]
  - RENAL FAILURE [None]
  - WHITE BLOOD CELL COUNT INCREASED [None]
